FAERS Safety Report 6231288-2 (Version None)
Quarter: 2009Q2

REPORT INFORMATION
  Report Type: 
  Country: None (occurrence: None)
  Receive Date: 20090616
  Receipt Date: 20090609
  Transmission Date: 20091009
  Serious: Yes (Hospitalization)
  Sender: FDA-Public Use
  Company Number: GR-AVENTIS-200915963GDDC

PATIENT
  Age: 57 Year
  Sex: Male

DRUGS (2)
  1. DOCETAXEL [Suspect]
     Route: 042
     Dates: start: 20090513, end: 20090513
  2. CISPLATIN [Suspect]
     Route: 042
     Dates: start: 20090513, end: 20090513

REACTIONS (2)
  - FATIGUE [None]
  - HYPERCALCAEMIA [None]
